FAERS Safety Report 6732370-3 (Version None)
Quarter: 2010Q2

REPORT INFORMATION
  Report Type: 
  Country: None (occurrence: None)
  Receive Date: 20100519
  Receipt Date: 20100510
  Transmission Date: 20101027
  Serious: Yes (Life-Threatening)
  Sender: FDA-Public Use
  Company Number: JP-ROCHE-699531

PATIENT
  Sex: Male
  Weight: 77.4 kg

DRUGS (12)
  1. AVASTIN [Suspect]
     Indication: LUNG ADENOCARCINOMA
     Route: 041
     Dates: start: 20091112, end: 20091225
  2. AVASTIN [Suspect]
     Route: 041
     Dates: start: 20100118, end: 20100412
  3. CISPLATIN [Concomitant]
     Indication: LUNG ADENOCARCINOMA
     Route: 041
     Dates: start: 20091019, end: 20091225
  4. ALIMTA [Concomitant]
     Indication: LUNG ADENOCARCINOMA
     Route: 041
     Dates: start: 20091019, end: 20100412
  5. CYANOCOBALAMIN [Concomitant]
     Route: 030
     Dates: start: 20091009
  6. PANVITAN [Concomitant]
     Dosage: DRUG REPORTED AS PANVITAN(RETINOL_CALCIFEROL COMBINED DRUG)
     Route: 048
     Dates: start: 20091009
  7. PREDONINE [Concomitant]
     Route: 048
     Dates: start: 20100118, end: 20100121
  8. DEXART [Concomitant]
     Route: 041
     Dates: start: 20100118, end: 20100412
  9. ALLOZYM [Concomitant]
     Route: 048
  10. TENORMIN [Concomitant]
     Route: 048
  11. AMLODIN [Concomitant]
     Route: 048
  12. SIMVASTATIN [Concomitant]
     Route: 048

REACTIONS (2)
  - AORTIC DISSECTION [None]
  - HYPERTENSION [None]
